FAERS Safety Report 12745461 (Version 1)
Quarter: 2016Q3

REPORT INFORMATION
  Report Type: Spontaneous
  Country: US (occurrence: US)
  Receive Date: 20160915
  Receipt Date: 20160915
  Transmission Date: 20161109
  Serious: No
  Sender: FDA-Public Use
  Company Number: US-PFIZER INC-2016427133

PATIENT
  Age: 74 Year
  Sex: Female
  Weight: 62.14 kg

DRUGS (3)
  1. XGEVA [Concomitant]
     Active Substance: DENOSUMAB
     Indication: BONE DISORDER
     Dosage: 120 MG (1 SHOT), MONTHLY (EVERY 4 WEEKS)
  2. IBRANCE [Suspect]
     Active Substance: PALBOCICLIB
     Indication: BREAST CANCER
     Dosage: 125 MG, CYCLIC, (EVERY NIGHT FOR 21 DAYS, OFF FOR 7 DAYS)
  3. FEMORANGE [Concomitant]
     Indication: BREAST CANCER
     Dosage: 2.5 MG, DAILY

REACTIONS (2)
  - Glossodynia [Not Recovered/Not Resolved]
  - Speech disorder [Unknown]

NARRATIVE: CASE EVENT DATE: 201609
